FAERS Safety Report 8815499 (Version 2)
Quarter: 2012Q4

REPORT INFORMATION
  Report Type: 
  Country: HU (occurrence: HU)
  Receive Date: 20120928
  Receipt Date: 20121010
  Transmission Date: 20130627
  Serious: Yes (Other)
  Sender: FDA-Public Use
  Company Number: HU-GLAXOSMITHKLINE-B0833443A

PATIENT
  Age: 65 Year
  Sex: Female

DRUGS (3)
  1. TYVERB [Suspect]
     Indication: BREAST CANCER
     Dosage: 1250MG per day
     Route: 065
     Dates: start: 201206
  2. XELODA [Suspect]
     Indication: BREAST CANCER
     Dosage: 2000MG per day
     Route: 065
     Dates: start: 201206
  3. NEBIVOLOL [Concomitant]
     Indication: ARRHYTHMIA
     Dosage: 2.5MG per day
     Dates: start: 2011

REACTIONS (3)
  - Haemorrhage [Recovering/Resolving]
  - Skin hypertrophy [Recovering/Resolving]
  - Pain of skin [Recovering/Resolving]
